FAERS Safety Report 8816758 (Version 3)
Quarter: 2013Q1

REPORT INFORMATION
  Report Type: Spontaneous
  Country: US (occurrence: None)
  Receive Date: 20121001
  Receipt Date: 20121220
  Transmission Date: 20140127
  Serious: Yes (Death)
  Sender: FDA-Public Use
  Company Number: 2012-469

PATIENT
  Age: 70 Year
  Sex: Female

DRUGS (3)
  1. PRIALT [Suspect]
     Indication: PAIN
     Dosage: MCG, ONCE/HR, INTRATHECAL
     Route: 037
     Dates: end: 20120812
  2. CLONIDINE [Suspect]
     Dosage: UNK MCG, ONCE/HR, INTRATHECAL
     Route: 037
     Dates: end: 20120812
  3. FENTANYL [Suspect]
     Dosage: UNK MCG, ONCE/HOUR, INTRATHECAL
     Route: 037
     Dates: end: 20120812

REACTIONS (1)
  - Death [None]
